FAERS Safety Report 5711484-0 (Version None)
Quarter: 2008Q2

REPORT INFORMATION
  Report Type: 
  Country: None (occurrence: None)
  Receive Date: 20080421
  Receipt Date: 20080411
  Transmission Date: 20081010
  Serious: Yes (Hospitalization, Other)
  Sender: FDA-Public Use
  Company Number: US-MERCK-0801USA03085

PATIENT
  Age: 71 Year
  Sex: Female

DRUGS (5)
  1. FOSAMAX [Suspect]
     Indication: OSTEOPOROSIS
     Route: 048
     Dates: start: 19980101, end: 20060101
  2. LITHIUM CARBONATE [Concomitant]
     Indication: BIPOLAR DISORDER
     Route: 065
     Dates: start: 19850101, end: 20040101
  3. LAMICTAL [Concomitant]
     Indication: BIPOLAR I DISORDER
     Route: 065
     Dates: start: 20040101
  4. SEROQUEL [Concomitant]
     Indication: BIPOLAR I DISORDER
     Route: 065
     Dates: start: 20040101
  5. ZOLOFT [Concomitant]
     Indication: BIPOLAR DISORDER
     Route: 065
     Dates: start: 20040101

REACTIONS (4)
  - ANXIETY [None]
  - DEPRESSION [None]
  - OSTEONECROSIS [None]
  - STRESS [None]
